FAERS Safety Report 8048497-2 (Version None)
Quarter: 2012Q1

REPORT INFORMATION
  Report Type: 
  Country: None (occurrence: None)
  Receive Date: 20120117
  Receipt Date: 20120111
  Transmission Date: 20120608
  Serious: No
  Sender: FDA-Public Use
  Company Number: US-PFIZER INC-2012009395

PATIENT
  Age: 86 Year
  Sex: Male

DRUGS (3)
  1. LIPITOR [Suspect]
     Dosage: UNK
  2. AMLODIPINE/VALSARTAN [Concomitant]
     Dosage: UNK
  3. PLAVIX [Suspect]
     Dosage: UNK

REACTIONS (1)
  - PRURITUS [None]
